FAERS Safety Report 8309984-2 (Version None)
Quarter: 2012Q2

REPORT INFORMATION
  Report Type: 
  Country: None (occurrence: None)
  Receive Date: 20120425
  Receipt Date: 20120420
  Transmission Date: 20120825
  Serious: Yes (Life-Threatening, Hospitalization)
  Sender: FDA-Public Use
  Company Number: GB-PFIZER INC-2012097969

PATIENT
  Age: 68 Year
  Sex: Male
  Weight: 75 kg

DRUGS (9)
  1. VARENICLINE TARTRATE [Suspect]
     Dosage: 500 UG, 2X/DAY
     Route: 048
     Dates: start: 20120320, end: 20120324
  2. LOSARTAN POTASSIUM AND HYDROCHLOROTHIAZIDE [Concomitant]
     Dosage: 12.5/50MG (LONG TERM USE)
     Route: 048
  3. ACETYLSALICYLIC ACID [Concomitant]
     Dosage: 75 MG, 1X/DAY (LONG TERM USE)
     Route: 048
  4. VARENICLINE TARTRATE [Suspect]
     Dosage: 1 MG, 2X/DAY
     Route: 048
     Dates: start: 20120325, end: 20120403
  5. VARENICLINE TARTRATE [Suspect]
     Dosage: 500 UG, 1X/DAY
     Route: 048
     Dates: start: 20120316, end: 20120319
  6. LORATADINE [Concomitant]
     Dosage: 10 MG, 1X/DAY (LONG TERM USE)
     Route: 048
  7. LANSOPRAZOLE [Suspect]
     Dosage: 15 MG, 1X/DAY
     Route: 048
     Dates: start: 20120316, end: 20120403
  8. RAMIPRIL [Concomitant]
     Dosage: 10 MG, 1X/DAY (LONG TERM USE)
     Route: 048
  9. SIMVASTATIN [Concomitant]
     Dosage: 40 MG, 1X/DAY (TAKEN AT NIGHT, LONG TERM USE)
     Route: 048

REACTIONS (1)
  - PANCYTOPENIA [None]
